FAERS Safety Report 14098832 (Version 1)
Quarter: 2017Q4

REPORT INFORMATION
  Report Type: Report from Study
  Country: CO (occurrence: CO)
  Receive Date: 20171017
  Receipt Date: 20171017
  Transmission Date: 20180321
  Serious: Yes (Other)
  Sender: FDA-Public Use
  Company Number: CO-JNJFOC-20171015126

PATIENT
  Age: 62 Year
  Sex: Male
  Weight: 108 kg

DRUGS (1)
  1. STELARA [Suspect]
     Active Substance: USTEKINUMAB
     Indication: PSORIASIS
     Route: 058
     Dates: start: 20151019

REACTIONS (1)
  - Tooth abscess [Recovering/Resolving]

NARRATIVE: CASE EVENT DATE: 20170817
